FAERS Safety Report 4711056-0 (Version None)
Quarter: 2005Q3

REPORT INFORMATION
  Report Type: 
  Country: None (occurrence: None)
  Receive Date: 20050706
  Receipt Date: 20050407
  Transmission Date: 20060218
  Serious: No
  Sender: FDA-Public Use
  Company Number: US125576

PATIENT
  Age: 34 Year
  Sex: Female

DRUGS (1)
  1. SENSIPAR [Suspect]
     Indication: HYPERPARATHYROIDISM SECONDARY
     Dosage: 120 MG, 1 IN 1 DAYS, PO
     Route: 048
     Dates: start: 20041101

REACTIONS (2)
  - LYMPHADENOPATHY [None]
  - NECK MASS [None]
